FAERS Safety Report 9892252 (Version 2)
Quarter: 2014Q1

REPORT INFORMATION
  Report Type: Spontaneous
  Country: GB (occurrence: GB)
  Receive Date: 20140212
  Receipt Date: 20140212
  Transmission Date: 20141002
  Serious: Yes (Other)
  Sender: FDA-Public Use
  Company Number: CHPA2014GB001183

PATIENT
  Age: 3 Year
  Sex: Female

DRUGS (2)
  1. TIXYLIX BABY SYRUP [Suspect]
     Dosage: UNK
     Dates: start: 201309
  2. TIXYLIX CHESTY COUGH [Suspect]
     Dosage: UNK
     Dates: start: 201309

REACTIONS (6)
  - Blood urine present [Not Recovered/Not Resolved]
  - Dysuria [Not Recovered/Not Resolved]
  - Abdominal pain upper [Not Recovered/Not Resolved]
  - Screaming [Not Recovered/Not Resolved]
  - Pain [Not Recovered/Not Resolved]
  - Foreign body [Not Recovered/Not Resolved]
